FAERS Safety Report 14171321 (Version 1)
Quarter: 2017Q4

REPORT INFORMATION
  Report Type: Spontaneous
  Country: CA (occurrence: CA)
  Receive Date: 20171108
  Receipt Date: 20171108
  Transmission Date: 20180321
  Serious: Yes (Other)
  Sender: FDA-Public Use
  Company Number: CA-ALLERGAN-1763251US

PATIENT
  Age: 69 Year
  Sex: Female
  Weight: 52.15 kg

DRUGS (1)
  1. ALPHAGAN P [Suspect]
     Active Substance: BRIMONIDINE TARTRATE
     Indication: GLAUCOMA
     Dosage: 1 GTT, QOD
     Route: 047

REACTIONS (6)
  - Eye swelling [Recovered/Resolved]
  - Inappropriate schedule of drug administration [Unknown]
  - Blindness unilateral [Recovered/Resolved]
  - Eyelid thickening [Recovered/Resolved]
  - Dyspnoea [Recovered/Resolved]
  - Eye pain [Recovered/Resolved]
